FAERS Safety Report 9580906 (Version 1)
Quarter: 2013Q3

REPORT INFORMATION
  Report Type: Spontaneous
  Country: US (occurrence: None)
  Receive Date: 20130916
  Receipt Date: 20130916
  Transmission Date: 20140515
  Serious: Yes (Other)
  Sender: FDA-Public Use
  Company Number: JPI-P-026154

PATIENT
  Age: 28 Year
  Sex: Female
  Weight: 146.97 kg

DRUGS (8)
  1. XYREM [Suspect]
     Indication: CATAPLEXY
     Dosage: 4.5 GM (2.25 GM, 2 IN 1 D), ORAL
     Dates: start: 20121018, end: 201210
  2. MODAFINIL [Concomitant]
  3. DESVENLAFAXINE [Concomitant]
  4. TOPIRAMATE [Concomitant]
  5. METOPROLOL [Concomitant]
  6. ATENOLOL [Concomitant]
  7. TRAMADOL [Concomitant]
  8. PROMETHAZINE [Concomitant]

REACTIONS (4)
  - Blood pressure increased [None]
  - Condition aggravated [None]
  - Mobility decreased [None]
  - Nausea [None]
